FAERS Safety Report 9083315 (Version 1)
Quarter: 2013Q1

REPORT INFORMATION
  Report Type: Spontaneous
  Country: US (occurrence: US)
  Receive Date: 20130130
  Receipt Date: 20130130
  Transmission Date: 20140127
  Serious: Yes (Other)
  Sender: FDA-Public Use
  Company Number: US-ABBOTT-12P-163-0921647-00

PATIENT
  Sex: Female
  Weight: 46.31 kg

DRUGS (10)
  1. HUMIRA 40 MG/0.8 ML PEN [Suspect]
     Indication: RHEUMATOID ARTHRITIS
     Route: 058
     Dates: start: 2002
  2. PLAQUENIL [Concomitant]
     Indication: RHEUMATOID ARTHRITIS
  3. ZOCOR [Concomitant]
     Indication: CARDIAC DISORDER
  4. LISINOPRIL [Concomitant]
     Indication: BLOOD PRESSURE
  5. COREG [Concomitant]
     Indication: CARDIAC DISORDER
  6. ASPIRIN [Concomitant]
     Indication: CARDIAC DISORDER
  7. NITROGLYCERIN [Concomitant]
     Indication: CARDIAC DISORDER
  8. TRAMADOL [Concomitant]
     Indication: PAIN
  9. CLONAZEPAM [Concomitant]
     Indication: MUSCLE SPASMS
  10. VITAMINS [Concomitant]
     Indication: VITAMIN SUPPLEMENTATION

REACTIONS (2)
  - Silent myocardial infarction [Recovered/Resolved]
  - Dyspnoea [Recovered/Resolved]
